FAERS Safety Report 6042588-3 (Version None)
Quarter: 2009Q1

REPORT INFORMATION
  Report Type: 
  Country: None (occurrence: None)
  Receive Date: 20090119
  Receipt Date: 20090109
  Transmission Date: 20090719
  Serious: No
  Sender: FDA-Public Use
  Company Number: US-JNJFOC-20090102514

PATIENT
  Sex: Female

DRUGS (5)
  1. INVEGA [Suspect]
     Indication: DRUG USE FOR UNKNOWN INDICATION
  2. PROZAC [Concomitant]
  3. TRAZODONE HCL [Concomitant]
     Indication: DRUG USE FOR UNKNOWN INDICATION
     Route: 048
  4. XANAX [Concomitant]
     Indication: DRUG USE FOR UNKNOWN INDICATION
  5. COGENTIN [Concomitant]
     Indication: DRUG USE FOR UNKNOWN INDICATION

REACTIONS (2)
  - BRUXISM [None]
  - MUSCLE TIGHTNESS [None]
